FAERS Safety Report 4794457-4 (Version None)
Quarter: 2005Q4

REPORT INFORMATION
  Report Type: 
  Country: None (occurrence: None)
  Receive Date: 20051011
  Receipt Date: 20050929
  Transmission Date: 20060501
  Serious: Yes (Hospitalization)
  Sender: FDA-Public Use
  Company Number: PHBS2005US14531

PATIENT
  Age: 44 Year
  Sex: Female

DRUGS (6)
  1. CARBAMAZEPINE [Suspect]
     Dosage: 400 MG/BID AND 600 MG AT BEDTIME
     Route: 065
  2. RISPERIDONE [Concomitant]
     Dosage: 4 MG, BID
     Route: 065
  3. BUSPIRONE HCL [Concomitant]
     Dosage: 20 MG, TID
     Route: 065
  4. NADOLOL [Concomitant]
     Dosage: 10 MG IN THE MORNING AND 40 MG AT BEDTIME
     Route: 065
  5. HYDROXYZINE [Concomitant]
     Dosage: 50 MG, BID
     Route: 065
  6. PAROXETINE HCL [Concomitant]
     Dosage: 40MG MORNING AND 20MG EVENING
     Route: 065

REACTIONS (12)
  - BLOOD CHLORIDE DECREASED [None]
  - BLOOD OSMOLARITY INCREASED [None]
  - BLOOD SODIUM DECREASED [None]
  - CONFUSIONAL STATE [None]
  - DIZZINESS [None]
  - GRAND MAL CONVULSION [None]
  - HYPONATRAEMIA [None]
  - LOSS OF CONSCIOUSNESS [None]
  - NYSTAGMUS [None]
  - SYNCOPE [None]
  - URINE SODIUM DECREASED [None]
  - VISUAL DISTURBANCE [None]
